FAERS Safety Report 10664137 (Version 7)
Quarter: 2015Q1

REPORT INFORMATION
  Report Type: Spontaneous
  Country: US (occurrence: US)
  Receive Date: 20141219
  Receipt Date: 20150310
  Transmission Date: 20150720
  Serious: Yes (Hospitalization)
  Sender: FDA-Public Use
  Company Number: US-UNITED THERAPEUTICS-UNT-2014-012228

PATIENT
  Age: 49 Year
  Sex: Female
  Weight: 61.22 kg

DRUGS (4)
  1. ADEMPAS [Concomitant]
     Active Substance: RIOCIGUAT
     Indication: PRODUCT USED FOR UNKNOWN INDICATION
     Dosage: UNK
     Dates: start: 201412
  2. TYVASO [Suspect]
     Active Substance: TREPROSTINIL
     Dosage: 18-72 MCG,QID
  3. TYVASO [Suspect]
     Active Substance: TREPROSTINIL
     Indication: PULMONARY HYPERTENSION
     Dosage: 18-72 MCG,QID
     Dates: start: 20140224
  4. LETAIRIS [Concomitant]
     Active Substance: AMBRISENTAN
     Indication: PRODUCT USED FOR UNKNOWN INDICATION

REACTIONS (6)
  - Cardiac failure [Unknown]
  - Cardiac failure congestive [Unknown]
  - Anxiety [Unknown]
  - Abdominal pain [Unknown]
  - Pulmonary oedema [Unknown]
  - Cough [Unknown]

NARRATIVE: CASE EVENT DATE: 2014
